FAERS Safety Report 19995458 (Version 1)
Quarter: 2021Q4

REPORT INFORMATION
  Report Type: Spontaneous
  Country: US (occurrence: US)
  Receive Date: 20211025
  Receipt Date: 20211025
  Transmission Date: 20220303
  Serious: Yes (Other)
  Sender: FDA-Public Use
  Company Number: US-GLAXOSMITHKLINE-US2021GSK221362

PATIENT
  Sex: Female

DRUGS (2)
  1. ZANTAC [Suspect]
     Active Substance: RANITIDINE HYDROCHLORIDE
     Dosage: AS NEEDED|OVER THE COUNTER
     Route: 065
     Dates: start: 199901, end: 201912
  2. ZANTAC [Suspect]
     Active Substance: RANITIDINE HYDROCHLORIDE
     Dosage: AS NEEDED|OVER THE COUNTER
     Route: 065
     Dates: start: 199901, end: 201912

REACTIONS (2)
  - Gallbladder cancer [Unknown]
  - Gastric cancer [Unknown]
